FAERS Safety Report 4838971-1 (Version None)
Quarter: 2005Q4

REPORT INFORMATION
  Report Type: 
  Country: None (occurrence: None)
  Receive Date: 20051031
  Receipt Date: 20050725
  Transmission Date: 20060501
  Serious: Yes (Other)
  Sender: FDA-Public Use
  Company Number: 200515983US

PATIENT
  Age: 81 Year
  Sex: Female

DRUGS (8)
  1. KETEK [Suspect]
  2. MELOXICAM (MOBIC) [Concomitant]
  3. LIPITOR [Concomitant]
  4. ACTONEL [Concomitant]
  5. HYDROCHLOROTHIAZIDE [Concomitant]
  6. PLAVIX [Concomitant]
  7. ACCUPRIL [Concomitant]
  8. DIOVAN [Concomitant]

REACTIONS (2)
  - ANGIONEUROTIC OEDEMA [None]
  - OEDEMA [None]
